FAERS Safety Report 15862610 (Version 2)
Quarter: 2019Q2

REPORT INFORMATION
  Report Type: Report from Study
  Country: FR (occurrence: FR)
  Receive Date: 20190124
  Receipt Date: 20190624
  Transmission Date: 20190711
  Serious: Yes (Other)
  Sender: FDA-Public Use
  Company Number: FR-EMD SERONO-9065619

PATIENT
  Age: 29 Year
  Sex: Female

DRUGS (2)
  1. DECAPEPTYL                         /00486501/ [Concomitant]
     Active Substance: GONADORELIN
     Indication: IN VITRO FERTILISATION
  2. OVITRELLE [Suspect]
     Active Substance: CHORIOGONADOTROPIN ALFA
     Indication: IN VITRO FERTILISATION

REACTIONS (6)
  - Ovarian hyperstimulation syndrome [Unknown]
  - Oestradiol increased [Unknown]
  - Dyspnoea [Unknown]
  - Intra-abdominal fluid collection [Unknown]
  - Weight increased [Unknown]
  - Dysphagia [Unknown]
